FAERS Safety Report 4866822-8 (Version None)
Quarter: 2005Q4

REPORT INFORMATION
  Report Type: 
  Country: None (occurrence: None)
  Receive Date: 20051222
  Receipt Date: 20051209
  Transmission Date: 20060501
  Serious: Yes (Hospitalization)
  Sender: FDA-Public Use
  Company Number: 2005166167

PATIENT
  Sex: Male

DRUGS (1)
  1. NICORETTE [Suspect]
     Dosage: 1 PATCH ONCE, TRANSDERMAL
     Route: 062
     Dates: start: 20051209, end: 20051209

REACTIONS (3)
  - CHEST DISCOMFORT [None]
  - DYSPEPSIA [None]
  - HEART RATE INCREASED [None]
